FAERS Safety Report 17346584 (Version 1)
Quarter: 2020Q1

REPORT INFORMATION
  Report Type: Spontaneous
  Country: NL (occurrence: NL)
  Receive Date: 20200130
  Receipt Date: 20200130
  Transmission Date: 20200409
  Serious: Yes (Hospitalization, Other)
  Sender: FDA-Public Use
  Company Number: NVSC2020NL021824

PATIENT
  Age: 51 Year
  Sex: Male
  Weight: 86 kg

DRUGS (5)
  1. MERCAPTOPURINE. [Suspect]
     Active Substance: MERCAPTOPURINE
     Dosage: 150 MG (1.7 MG/KG)
     Route: 065
  2. SALOFALK (MESALAZINE) [Suspect]
     Active Substance: MESALAMINE
     Indication: COLITIS ULCERATIVE
     Dosage: UNK
     Route: 048
  3. ALLOPURINOL. [Suspect]
     Active Substance: ALLOPURINOL
     Indication: COLITIS ULCERATIVE
     Dosage: UNK
     Route: 065
  4. SALOFALK (MESALAZINE) [Suspect]
     Active Substance: MESALAMINE
     Indication: COLITIS ULCERATIVE
     Route: 054
  5. MERCAPTOPURINE. [Suspect]
     Active Substance: MERCAPTOPURINE
     Indication: COLITIS ULCERATIVE
     Dosage: DOSE REDUCED BY 25- 33 %
     Route: 065

REACTIONS (6)
  - Anaemia [Recovered/Resolved]
  - Pyrexia [Unknown]
  - Bone marrow failure [Unknown]
  - Off label use [Unknown]
  - Condition aggravated [Unknown]
  - Leukopenia [Recovering/Resolving]
